FAERS Safety Report 18266217 (Version 1)
Quarter: 2020Q3

REPORT INFORMATION
  Report Type: Spontaneous
  Country: CN (occurrence: CN)
  Receive Date: 20200915
  Receipt Date: 20200915
  Transmission Date: 20201103
  Serious: Yes (Death, Hospitalization, Other)
  Sender: FDA-Public Use
  Company Number: CN-SUN PHARMACEUTICAL INDUSTRIES LTD-2020R1-260420

PATIENT
  Age: 63 Year
  Sex: Male

DRUGS (6)
  1. GOSERELIN [Suspect]
     Active Substance: GOSERELIN
     Indication: ANTIANDROGEN THERAPY
     Route: 065
  2. ABIRATERONE. [Suspect]
     Active Substance: ABIRATERONE ACETATE
     Indication: ANTIANDROGEN THERAPY
     Dosage: UNK
     Route: 065
  3. CISPLATIN. [Suspect]
     Active Substance: CISPLATIN
     Indication: CHEMOTHERAPY
     Dosage: 40 MILLIGRAM(DAY 1?3, ONCE EVERY 3 WEEK)
     Route: 065
  4. ETOPOSIDE. [Suspect]
     Active Substance: ETOPOSIDE
     Indication: CHEMOTHERAPY
     Dosage: 0.1 GRAM(DAY1?5)
     Route: 065
  5. BICALUTAMIDE. [Suspect]
     Active Substance: BICALUTAMIDE
     Indication: ANTIANDROGEN THERAPY
     Dosage: UNK
     Route: 065
  6. OLAPARIB. [Suspect]
     Active Substance: OLAPARIB
     Indication: BRCA1 GENE MUTATION
     Dosage: UNK
     Route: 065

REACTIONS (7)
  - Disease progression [Fatal]
  - Cardiac failure [Fatal]
  - Myelosuppression [Unknown]
  - Electrolyte imbalance [Unknown]
  - Flatulence [Unknown]
  - Hypoproteinaemia [Unknown]
  - Respiratory failure [Fatal]
